FAERS Safety Report 15560222 (Version 1)
Quarter: 2018Q4

REPORT INFORMATION
  Report Type: Spontaneous
  Country: US (occurrence: US)
  Receive Date: 20181029
  Receipt Date: 20181029
  Transmission Date: 20190205
  Serious: No
  Sender: FDA-Public Use
  Company Number: US-TEVA-2018-US-967735

PATIENT
  Sex: Female

DRUGS (1)
  1. METOPROLOL SUCCINATE ER [Suspect]
     Active Substance: METOPROLOL SUCCINATE
     Indication: ANGINA PECTORIS
     Dates: start: 201802

REACTIONS (3)
  - Peripheral swelling [Unknown]
  - Joint swelling [Unknown]
  - Frequent bowel movements [Unknown]
